FAERS Safety Report 14790619 (Version 2)
Quarter: 2018Q4

REPORT INFORMATION
  Report Type: Spontaneous
  Country: US (occurrence: US)
  Receive Date: 20180423
  Receipt Date: 20181205
  Transmission Date: 20190204
  Serious: Yes (Death)
  Sender: FDA-Public Use
  Company Number: US-LEXICON PHARMACEUTICALS, INC-18-1606-00428

PATIENT
  Age: 74 Year
  Sex: Female
  Weight: 48.2 kg

DRUGS (13)
  1. ZOFRAN [Concomitant]
     Active Substance: ONDANSETRON HYDROCHLORIDE
     Indication: VOMITING
  2. DULCOLAX NOS [Concomitant]
     Active Substance: BISACODYL OR DOCUSATE SODIUM
     Route: 054
  3. HALDOL [Concomitant]
     Active Substance: HALOPERIDOL
     Indication: AGITATION
     Route: 048
  4. HALDOL [Concomitant]
     Active Substance: HALOPERIDOL
     Indication: NAUSEA
  5. ACEPHEN [Concomitant]
     Active Substance: ACETAMINOPHEN
     Indication: PYREXIA
     Route: 054
  6. ZOFRAN [Concomitant]
     Active Substance: ONDANSETRON HYDROCHLORIDE
     Indication: NAUSEA
  7. ATIVAN [Concomitant]
     Active Substance: LORAZEPAM
     Indication: ANXIETY
     Route: 048
  8. ATIVAN [Concomitant]
     Active Substance: LORAZEPAM
     Indication: SLEEP DISORDER
  9. TELOTRISTAT ETHYL [Suspect]
     Active Substance: TELOTRISTAT ETHYL
     Indication: CARCINOID SYNDROME
     Route: 048
     Dates: start: 20180208, end: 2018
  10. NORCO [Concomitant]
     Active Substance: ACETAMINOPHEN\HYDROCODONE BITARTRATE
     Indication: PAIN
     Dosage: 5-325 MG
     Route: 048
  11. ROXANOL [Concomitant]
     Active Substance: MORPHINE SULFATE
     Route: 048
  12. DULCOLAX NOS [Concomitant]
     Active Substance: BISACODYL OR DOCUSATE SODIUM
     Indication: CONSTIPATION
     Route: 048
  13. ISOPTO ATROPINE [Concomitant]
     Active Substance: ATROPINE SULFATE
     Indication: SINUS CONGESTION
     Dosage: 3 DROPS UNDER THE TONGUE EVERY 4 HOURS AS NEEDED FOR CONGESTION

REACTIONS (2)
  - Disease progression [Fatal]
  - Malnutrition [Fatal]

NARRATIVE: CASE EVENT DATE: 20180227
